FAERS Safety Report 19739545 (Version 2)
Quarter: 2021Q3

REPORT INFORMATION
  Report Type: Report from Study
  Country: US (occurrence: US)
  Receive Date: 20210823
  Receipt Date: 20210924
  Transmission Date: 20211014
  Serious: Yes (Hospitalization)
  Sender: FDA-Public Use
  Company Number: US-B.I. PHARMACEUTICALS,INC./RIDGEFIELD-2020-BI-007793

PATIENT
  Age: 65 Year
  Sex: Male

DRUGS (2)
  1. OFEV [Suspect]
     Active Substance: NINTEDANIB
     Dosage: OFEV DOSE 150MG DAILY
     Route: 048
  2. OFEV [Suspect]
     Active Substance: NINTEDANIB
     Indication: IDIOPATHIC PULMONARY FIBROSIS
     Dosage: OFEV  150MG ORALLY  TWICE DAILY
     Route: 048
     Dates: start: 20200127

REACTIONS (10)
  - Haemoptysis [Unknown]
  - Diarrhoea [Unknown]
  - Fatigue [Unknown]
  - Scab [Unknown]
  - COVID-19 [Unknown]
  - Pneumonia [Unknown]
  - Hypertension [Unknown]
  - Dry throat [Unknown]
  - Vomiting [Unknown]
  - Chest pain [Recovering/Resolving]

NARRATIVE: CASE EVENT DATE: 202001
